FAERS Safety Report 9717661 (Version 2)
Quarter: 2014Q2

REPORT INFORMATION
  Report Type: Spontaneous
  Country: US (occurrence: US)
  Receive Date: 20131127
  Receipt Date: 20140516
  Transmission Date: 20141212
  Serious: Yes (Death, Hospitalization, Other)
  Sender: FDA-Public Use
  Company Number: US-B.I. PHARMACEUTICALS,INC./RIDGEFIELD-2013-BI-39512BP

PATIENT
  Age: 77 Year
  Sex: Male
  Weight: 122.02 kg

DRUGS (1)
  1. PRADAXA [Suspect]
     Indication: ATRIAL FIBRILLATION
     Route: 065
     Dates: start: 20110112, end: 20111103

REACTIONS (8)
  - Subarachnoid haemorrhage [Fatal]
  - Subdural haematoma [Fatal]
  - Haemorrhage intracranial [Fatal]
  - Skull fracture [Fatal]
  - Fall [Unknown]
  - Brain contusion [Unknown]
  - Hypocoagulable state [Recovered/Resolved]
  - Haemorrhagic anaemia [Unknown]
